FAERS Safety Report 14341989 (Version 14)
Quarter: 2024Q3

REPORT INFORMATION
  Report Type: Spontaneous
  Country: FR (occurrence: FR)
  Receive Date: 20180102
  Receipt Date: 20240918
  Transmission Date: 20241017
  Serious: Yes (Hospitalization, Other)
  Sender: MYLAN
  Company Number: FR-BIOGARAN-B17001624

PATIENT
  Age: 84 Year
  Sex: Female
  Weight: 68 kg

DRUGS (28)
  1. ACETAMINOPHEN\TRAMADOL [Suspect]
     Active Substance: ACETAMINOPHEN\TRAMADOL
     Indication: Arthralgia
     Dosage: UNK
     Route: 048
  2. ACETAMINOPHEN\TRAMADOL [Suspect]
     Active Substance: ACETAMINOPHEN\TRAMADOL
     Dosage: UNK
     Route: 065
  3. SPIRONOLACTONE [Interacting]
     Active Substance: SPIRONOLACTONE
     Indication: Hypertension
     Dosage: UNK, AM
     Route: 065
  4. SPIRONOLACTONE [Interacting]
     Active Substance: SPIRONOLACTONE
     Dosage: 25 MG, QD, PRN IN THE MORNING
     Route: 048
     Dates: start: 2016
  5. SPIRONOLACTONE [Interacting]
     Active Substance: SPIRONOLACTONE
     Dosage: 1 DF, QD
     Route: 065
     Dates: start: 20160101
  6. SPIRONOLACTONE [Interacting]
     Active Substance: SPIRONOLACTONE
     Dosage: 1 DF IN THE MORNING
     Route: 065
     Dates: start: 2016
  7. PERINDOPRIL [Interacting]
     Active Substance: PERINDOPRIL
     Indication: Hypertension
     Dosage: 5 MG, QD, IN THE EVENING
     Route: 048
     Dates: start: 2016
  8. PERINDOPRIL [Interacting]
     Active Substance: PERINDOPRIL
     Dosage: UNK, EVERY NIGHT AROUND 7.00 PM
     Route: 048
     Dates: start: 2017
  9. PERINDOPRIL [Interacting]
     Active Substance: PERINDOPRIL
     Dosage: 1 DF, QD
     Route: 065
     Dates: start: 20170101
  10. PERINDOPRIL [Interacting]
     Active Substance: PERINDOPRIL
     Dosage: UNK, QD
     Route: 065
     Dates: start: 2017
  11. RILMENIDINE [Interacting]
     Active Substance: RILMENIDINE
     Indication: Hypertension
     Dosage: UNK
     Route: 048
     Dates: start: 2007
  12. RILMENIDINE [Interacting]
     Active Substance: RILMENIDINE
     Dosage: UNK
     Route: 048
     Dates: start: 2017
  13. RILMENIDINE [Interacting]
     Active Substance: RILMENIDINE
     Dosage: UNK
     Route: 065
  14. NEBIVOLOL [Interacting]
     Active Substance: NEBIVOLOL
     Indication: Hypertension
     Dosage: UNK
     Route: 048
  15. NEBIVOLOL [Interacting]
     Active Substance: NEBIVOLOL
     Dosage: UNK
     Route: 065
  16. PERINDOPRIL ARGININE [Suspect]
     Active Substance: PERINDOPRIL ARGININE
     Indication: Hypertension
     Dosage: 5 MG, QD
     Route: 048
     Dates: start: 20160101
  17. PERINDOPRIL ARGININE [Suspect]
     Active Substance: PERINDOPRIL ARGININE
     Dosage: 5 MG, QD IN THE EVENING
     Route: 048
     Dates: start: 2016
  18. PERINDOPRIL ARGININE [Suspect]
     Active Substance: PERINDOPRIL ARGININE
     Dosage: 5 MG, QD IN THE EVENING
     Route: 048
     Dates: start: 2017
  19. PERINDOPRIL ARGININE [Suspect]
     Active Substance: PERINDOPRIL ARGININE
     Dosage: 1 DOSAGE FORM, HS1 DF EVERY NIGHT AROUND 07:00 PM
     Route: 065
     Dates: start: 2017
  20. HYDROCHLOROTHIAZIDE\VALSARTAN [Concomitant]
     Active Substance: HYDROCHLOROTHIAZIDE\VALSARTAN
     Indication: Hypertension
     Dosage: UNK
     Route: 065
  21. ASPIRIN [Concomitant]
     Active Substance: ASPIRIN
     Indication: Postoperative care
     Dosage: 100 MG, QD
     Route: 065
  22. ASPIRIN [Concomitant]
     Active Substance: ASPIRIN
     Indication: Stent placement
     Dosage: UNK
     Route: 065
  23. ALDACTAZINE [Concomitant]
     Active Substance: ALTHIAZIDE\SPIRONOLACTONE
     Indication: Hypertension
     Dosage: 1 DF, QD
     Route: 048
     Dates: start: 2016
  24. ALDACTAZINE [Concomitant]
     Active Substance: ALTHIAZIDE\SPIRONOLACTONE
     Dosage: UNK
     Route: 065
  25. HYDROCHLOROTHIAZIDE\VALSARTAN [Concomitant]
     Active Substance: HYDROCHLOROTHIAZIDE\VALSARTAN
     Indication: Hypertension
     Dosage: UNK
     Route: 065
  26. ALTHIAZIDE\SPIRONOLACTONE [Concomitant]
     Active Substance: ALTHIAZIDE\SPIRONOLACTONE
     Indication: Hypertension
     Dosage: UNK
     Route: 065
  27. ASPIRIN [Concomitant]
     Active Substance: ASPIRIN
     Indication: Stent placement
     Dosage: UNK
     Route: 065
  28. ASPIRIN [Concomitant]
     Active Substance: ASPIRIN
     Indication: Postoperative care
     Dosage: 100 MILLIGRAM, QD
     Route: 065

REACTIONS (21)
  - Urine output increased [Not Recovered/Not Resolved]
  - Respiratory disorder [Unknown]
  - Asthma [Unknown]
  - Vasculitis [Unknown]
  - Fatigue [Unknown]
  - Cough [Unknown]
  - Dyspnoea [Unknown]
  - Tachycardia [Unknown]
  - Arthralgia [Unknown]
  - Abdominal pain [Unknown]
  - Diarrhoea [Unknown]
  - Feeling hot [Unknown]
  - Myalgia [Unknown]
  - Acute kidney injury [Unknown]
  - Palpitations [Unknown]
  - Nausea [Unknown]
  - Medication error [Unknown]
  - Labelled drug-drug interaction medication error [Unknown]
  - Drug ineffective [Unknown]
  - Wrong schedule [Unknown]
  - Product use issue [Unknown]

NARRATIVE: CASE EVENT DATE: 20160101
